FAERS Safety Report 4895195-X (Version None)
Quarter: 2006Q1

REPORT INFORMATION
  Report Type: 
  Country: None (occurrence: None)
  Receive Date: 20060125
  Receipt Date: 20060123
  Transmission Date: 20060701
  Serious: Yes (Other)
  Sender: FDA-Public Use
  Company Number: GB-2006-000427

PATIENT
  Age: 36 Year
  Sex: Female

DRUGS (2)
  1. MIRENA [Suspect]
     Indication: MENORRHAGIA
     Dosage: 20 UG/DAY, INTRA-UTERINE
     Route: 015
     Dates: start: 20051115
  2. VENALAFAXINE [Concomitant]

REACTIONS (4)
  - DEPRESSION [None]
  - IRRITABILITY [None]
  - MOOD SWINGS [None]
  - NERVOUSNESS [None]
